FAERS Safety Report 9245260 (Version 1)
Quarter: 2013Q2

REPORT INFORMATION
  Report Type: Spontaneous
  Country: IT (occurrence: IT)
  Receive Date: 20130422
  Receipt Date: 20130422
  Transmission Date: 20140414
  Serious: Yes (Other)
  Sender: FDA-Public Use
  Company Number: IT-BRISTOL-MYERS SQUIBB COMPANY-17480658

PATIENT
  Age: 73 Year
  Sex: Male

DRUGS (6)
  1. COUMADIN TABS 5 MG [Suspect]
     Indication: ATRIAL FIBRILLATION
     Dosage: DRUG INTERRUPTED ON 22JAN2013.
     Route: 048
     Dates: start: 20110129
  2. BRUFEN [Suspect]
     Indication: BACK PAIN
     Dosage: BRUFEN 600 MG TABLETS,
     Route: 048
     Dates: start: 20130113, end: 20130122
  3. SOLDESAM [Suspect]
     Indication: BACK PAIN
     Dosage: SOLDESAM 8MG/2ML SOLUTION FOR INJECTION.
     Route: 030
     Dates: start: 20130120, end: 20130122
  4. TRIATEC [Concomitant]
     Dosage: TRIATEC ^10 MG TABLETS
     Route: 048
  5. DAONIL [Concomitant]
     Dosage: DAONIL 5 MG TABLETS
     Route: 048
  6. AMIODAR [Concomitant]
     Dosage: AMIODAR 200 MG TABLETS
     Route: 048

REACTIONS (2)
  - Haematuria [Recovered/Resolved]
  - Back pain [Unknown]
